FAERS Safety Report 4606213-8 (Version None)
Quarter: 2005Q1

REPORT INFORMATION
  Report Type: 
  Country: None (occurrence: None)
  Receive Date: 20050311
  Receipt Date: 20041224
  Transmission Date: 20050727
  Serious: Yes (Hospitalization)
  Sender: FDA-Public Use
  Company Number: JP-ABBOTT-04P-087-0284789-00

PATIENT
  Sex: Male

DRUGS (29)
  1. KALETRA [Suspect]
     Indication: HIV INFECTION
     Route: 048
     Dates: start: 20040206, end: 20040220
  2. KALETRA [Suspect]
     Route: 048
     Dates: start: 20030912, end: 20031106
  3. KALETRA [Suspect]
     Route: 048
     Dates: start: 20040221
  4. LAMIVUDINE [Suspect]
     Indication: HIV INFECTION
     Route: 048
     Dates: start: 20031203, end: 20040123
  5. LAMIVUDINE [Suspect]
     Route: 048
     Dates: start: 20030401, end: 20031114
  6. LAMIVUDINE [Suspect]
     Route: 048
     Dates: start: 20040221
  7. STAVUDINE [Suspect]
     Indication: HIV INFECTION
     Route: 048
     Dates: start: 20030401, end: 20031114
  8. NELFINAVIR [Suspect]
     Indication: HIV INFECTION
     Route: 048
     Dates: start: 20030401, end: 20030911
  9. NELFINAVIR [Suspect]
     Route: 048
     Dates: start: 20031107, end: 20031114
  10. NEVIRAPINE [Suspect]
     Indication: HIV INFECTION
     Route: 048
     Dates: start: 20040206, end: 20040220
  11. TENOFOVIR [Concomitant]
     Indication: HIV INFECTION
     Route: 048
     Dates: start: 20031203, end: 20040123
  12. TENOFOVIR [Concomitant]
     Route: 048
     Dates: start: 20040221
  13. CLARITHROMYCIN [Concomitant]
     Indication: MYCOBACTERIUM AVIUM COMPLEX INFECTION
     Route: 048
     Dates: start: 20030401, end: 20031114
  14. CLARITHROMYCIN [Concomitant]
     Route: 048
     Dates: start: 20031124
  15. BACTRIM [Concomitant]
     Indication: PNEUMOCYSTIS JIROVECI PNEUMONIA
     Route: 048
     Dates: start: 20030401
  16. ETHANBUTOL [Concomitant]
     Indication: ATYPICAL MYCOBACTERIAL LYMPHADENITIS
     Route: 048
     Dates: start: 20030401, end: 20031114
  17. ETHANBUTOL [Concomitant]
     Route: 048
     Dates: start: 20031124
  18. CIPROFLOXACIN [Concomitant]
     Indication: ATYPICAL MYCOBACTERIAL LYMPHADENITIS
     Route: 048
     Dates: start: 20030401, end: 20030718
  19. RIFABUTIN [Concomitant]
     Indication: ATYPICAL MYCOBACTERIAL LYMPHADENITIS
     Route: 048
     Dates: start: 20030401, end: 20030513
  20. RIFABUTIN [Concomitant]
     Route: 048
     Dates: start: 20030523, end: 20030911
  21. RIFABUTIN [Concomitant]
     Route: 048
     Dates: start: 20030912, end: 20031114
  22. RIFABUTIN [Concomitant]
     Route: 048
     Dates: start: 20031124, end: 20040108
  23. RIFABUTIN [Concomitant]
     Route: 048
     Dates: start: 20040109, end: 20040204
  24. RIFABUTIN [Concomitant]
     Route: 048
     Dates: start: 20040205
  25. LOPERAMIDE HCL [Concomitant]
     Indication: PROPHYLAXIS
     Route: 048
     Dates: start: 20030401, end: 20031114
  26. METOCLOPRAMIDE [Concomitant]
     Indication: NAUSEA
     Route: 048
     Dates: start: 20030401, end: 20031114
  27. RILMAZAFONE HYDROCHLORIDE [Concomitant]
     Indication: INSOMNIA
     Route: 048
     Dates: start: 20030401, end: 20040221
  28. PAROXETINE HCL [Concomitant]
     Indication: ANXIETY DISORDER
     Route: 048
     Dates: start: 20030401, end: 20040221
  29. LORMETAZEPAM [Concomitant]
     Indication: ANXIETY DISORDER
     Route: 048
     Dates: start: 20030401

REACTIONS (8)
  - ANOREXIA [None]
  - BLOOD TRIGLYCERIDES INCREASED [None]
  - CONDITION AGGRAVATED [None]
  - GAMMA-GLUTAMYLTRANSFERASE INCREASED [None]
  - HALLUCINATION, AUDITORY [None]
  - MANIA [None]
  - MEMORY IMPAIRMENT [None]
  - NAUSEA [None]
